FAERS Safety Report 24382571 (Version 1)
Quarter: 2024Q4

REPORT INFORMATION
  Report Type: Report from Study
  Country: US (occurrence: US)
  Receive Date: 20241001
  Receipt Date: 20241001
  Transmission Date: 20250114
  Serious: Yes (Death, Other)
  Sender: JOHNSON AND JOHNSON
  Company Number: US-JNJFOC-20240971456

PATIENT

DRUGS (2)
  1. ZYTIGA [Suspect]
     Active Substance: ABIRATERONE ACETATE
     Indication: Prostate cancer metastatic
     Route: 048
  2. ENZALUTAMIDE [Suspect]
     Active Substance: ENZALUTAMIDE
     Indication: Prostate cancer metastatic
     Route: 065

REACTIONS (26)
  - Cardiac arrest [Fatal]
  - Cerebrovascular accident [Fatal]
  - Coma [Fatal]
  - Multiple organ dysfunction syndrome [Fatal]
  - Dyspnoea [Fatal]
  - Anaphylactic reaction [Unknown]
  - Pathological fracture [Unknown]
  - Pain in extremity [Unknown]
  - Pneumonia [Unknown]
  - Thrombocytopenia [Unknown]
  - Decreased appetite [Unknown]
  - COVID-19 [Unknown]
  - Back pain [Unknown]
  - Asthenia [Unknown]
  - Weight decreased [Unknown]
  - Hypercalcaemia [Unknown]
  - Nausea [Unknown]
  - Anaemia [Unknown]
  - Fatigue [Unknown]
  - Arthralgia [Unknown]
  - Diarrhoea [Unknown]
  - Hypertension [Unknown]
  - Dry mouth [Unknown]
  - Constipation [Unknown]
  - Vomiting [Unknown]
  - Oedema peripheral [Unknown]
